FAERS Safety Report 24155748 (Version 2)
Quarter: 2024Q3

REPORT INFORMATION
  Report Type: Report from Study
  Country: CA (occurrence: CA)
  Receive Date: 20240731
  Receipt Date: 20240912
  Transmission Date: 20241016
  Serious: Yes (Other)
  Sender: CSL BEHRING
  Company Number: CA-BEH-2024175801

PATIENT
  Age: 66 Year
  Sex: Female
  Weight: 56.689 kg

DRUGS (10)
  1. HIZENTRA [Suspect]
     Active Substance: HUMAN IMMUNOGLOBULIN G
     Indication: Myasthenia gravis
     Dosage: 5 G, QW
     Route: 065
     Dates: start: 20240714
  2. HIZENTRA [Suspect]
     Active Substance: HUMAN IMMUNOGLOBULIN G
     Dosage: UNK
     Route: 065
     Dates: start: 20240714
  3. HIZENTRA [Suspect]
     Active Substance: HUMAN IMMUNOGLOBULIN G
     Dosage: UNK
     Route: 065
     Dates: start: 20240714
  4. SYNTHROID [Concomitant]
     Active Substance: LEVOTHYROXINE SODIUM
  5. MESTINON [Concomitant]
     Active Substance: PYRIDOSTIGMINE BROMIDE
  6. CANDESARTAN [Concomitant]
     Active Substance: CANDESARTAN
  7. VITAMIN D NOS [Concomitant]
     Active Substance: CHOLECALCIFEROL\ERGOCALCIFEROL
  8. CALCIUM [Concomitant]
     Active Substance: CALCIUM
  9. ISONIAZID [Concomitant]
     Active Substance: ISONIAZID
  10. Reactine [Concomitant]
     Indication: Prophylaxis
     Dosage: UNK
     Dates: start: 20240714

REACTIONS (7)
  - Loss of consciousness [Unknown]
  - Headache [Unknown]
  - Infusion site erythema [Unknown]
  - Infusion site swelling [Unknown]
  - Off label use [Unknown]
  - Malaise [Unknown]
  - Fatigue [Unknown]

NARRATIVE: CASE EVENT DATE: 20240714
